FAERS Safety Report 25095869 (Version 1)
Quarter: 2025Q1

REPORT INFORMATION
  Report Type: Spontaneous
  Country: US (occurrence: US)
  Receive Date: 20250319
  Receipt Date: 20250319
  Transmission Date: 20250409
  Serious: No
  Sender: TARO
  Company Number: US-TARO PHARMACEUTICALS USA INC.-2025TAR00295

PATIENT

DRUGS (1)
  1. TRETINOIN [Suspect]
     Active Substance: TRETINOIN
     Indication: Skin wrinkling
     Dosage: THE SIZE OF A PEA., OD AT NIGHT
     Route: 061

REACTIONS (3)
  - Dry skin [Not Recovered/Not Resolved]
  - Skin tightness [Unknown]
  - Off label use [Unknown]
